FAERS Safety Report 8984800 (Version 1)
Quarter: 2012Q4

REPORT INFORMATION
  Report Type: 
  Country: US (occurrence: US)
  Receive Date: 20121226
  Receipt Date: 20121226
  Transmission Date: 20130627
  Serious: No
  Sender: FDA-Public Use
  Company Number: US-PFIZER INC-2012322245

PATIENT
  Age: 63 Year
  Sex: Female
  Weight: 68.93 kg

DRUGS (2)
  1. PREMPRO [Suspect]
     Indication: ROUTINE HEALTH MAINTENANCE
     Dosage: 0.3/1.5 mg, daily
     Route: 048
  2. PREMPRO [Suspect]
     Indication: HORMONE REPLACEMENT THERAPY

REACTIONS (1)
  - Hot flush [Not Recovered/Not Resolved]
